FAERS Safety Report 7629826-8 (Version None)
Quarter: 2011Q3

REPORT INFORMATION
  Report Type: 
  Country: None (occurrence: None)
  Receive Date: 20110722
  Receipt Date: 20110713
  Transmission Date: 20111222
  Serious: Yes (Hospitalization)
  Sender: FDA-Public Use
  Company Number: JP-CELGENEUS-087-21660-11071644

PATIENT
  Sex: Female

DRUGS (1)
  1. ABRAXANE [Suspect]
     Indication: BREAST CANCER
     Route: 065
     Dates: start: 20110509

REACTIONS (1)
  - HERPES ZOSTER [None]
